FAERS Safety Report 23315567 (Version 1)
Quarter: 2023Q4

REPORT INFORMATION
  Report Type: Spontaneous
  Country: US (occurrence: US)
  Receive Date: 20231219
  Receipt Date: 20231219
  Transmission Date: 20240110
  Serious: No
  Sender: FDA-Public Use
  Company Number: US-ORG100016242-2023000280

PATIENT
  Sex: Male

DRUGS (6)
  1. EXPAREL [Suspect]
     Active Substance: BUPIVACAINE
     Indication: Surgery
     Route: 065
     Dates: start: 20231005, end: 20231005
  2. ROPIVACAINE [Suspect]
     Active Substance: ROPIVACAINE
     Indication: Surgery
     Dosage: NOT PROVIDED
     Route: 065
     Dates: start: 20231005, end: 20231005
  3. SALINE [Suspect]
     Active Substance: SODIUM CHLORIDE
     Indication: Surgery
     Dosage: NOT PROVIDED
     Route: 065
     Dates: start: 20231005, end: 20231005
  4. TORADOL [Suspect]
     Active Substance: KETOROLAC TROMETHAMINE
     Indication: Surgery
     Dosage: NOT PROVIDED
     Route: 065
     Dates: start: 20231005, end: 20231005
  5. MORPHINE [Suspect]
     Active Substance: MORPHINE
     Indication: Surgery
     Dosage: NOT PROVIDED
     Route: 065
     Dates: start: 20231005, end: 20231005
  6. EPINEPHRINE [Suspect]
     Active Substance: EPINEPHRINE
     Indication: Surgery
     Dosage: NOT PROVIDED
     Route: 065
     Dates: start: 20231005, end: 20231005

REACTIONS (2)
  - Labelled drug-drug interaction medication error [Recovering/Resolving]
  - No adverse event [Unknown]

NARRATIVE: CASE EVENT DATE: 20231005
